FAERS Safety Report 13333758 (Version 14)
Quarter: 2018Q1

REPORT INFORMATION
  Report Type: Spontaneous
  Country: GB (occurrence: GB)
  Receive Date: 20170314
  Receipt Date: 20180215
  Transmission Date: 20180508
  Serious: Yes (Death, Life-Threatening, Hospitalization)
  Sender: FDA-Public Use
  Company Number: GB-CELGENEUS-GBR-2017031747

PATIENT
  Age: 79 Year
  Sex: Male
  Weight: 92 kg

DRUGS (17)
  1. DARATUMUMAB [Suspect]
     Active Substance: DARATUMUMAB
     Indication: PLASMA CELL MYELOMA
     Dosage: 16 MG/KG (1456 MG), 1500
     Route: 041
     Dates: start: 20161103, end: 20170209
  2. OMEPRAZOLE. [Concomitant]
     Active Substance: OMEPRAZOLE
     Indication: PROPHYLAXIS AGAINST GASTROINTESTINAL ULCER
     Dosage: 20 MILLIGRAM
     Route: 048
  3. REVLIMID [Suspect]
     Active Substance: LENALIDOMIDE
     Indication: PLASMA CELL MYELOMA
     Dosage: 25 MILLIGRAM
     Route: 048
     Dates: start: 20161103, end: 20170216
  4. ENOXAPARIN [Concomitant]
     Active Substance: ENOXAPARIN
     Indication: THROMBOSIS PROPHYLAXIS
     Dosage: 40 MILLIGRAM
     Route: 041
     Dates: start: 20161103
  5. SENNA ALEXANDRINA [Concomitant]
     Active Substance: SENNA LEAF
     Indication: CONSTIPATION
     Dosage: 15 MILLIGRAM
     Route: 048
     Dates: start: 20161129
  6. COTRIMOXAZOLE [Concomitant]
     Active Substance: SULFAMETHOXAZOLE\TRIMETHOPRIM
     Indication: ANTIBIOTIC PROPHYLAXIS
     Dosage: 480 MILLIGRAM
     Route: 048
  7. SULFAMETHOXAZOLE/TRIMETHOPRIM [Concomitant]
     Active Substance: SULFAMETHOXAZOLE\TRIMETHOPRIM
     Indication: PRODUCT USED FOR UNKNOWN INDICATION
     Route: 065
     Dates: start: 20161103
  8. ADCAL D3 [Concomitant]
     Active Substance: CALCIUM CARBONATE\CHOLECALCIFEROL
     Indication: PROPHYLAXIS
     Dosage: 2 DOSAGE FORMS
     Route: 048
  9. BFZ 2 [Concomitant]
     Indication: HYPERTENSION
     Dosage: 5 MG
     Route: 048
  10. DEXAMETHASONE. [Suspect]
     Active Substance: DEXAMETHASONE
     Indication: PLASMA CELL MYELOMA
     Dosage: 20 MILLIGRAM
     Route: 048
     Dates: start: 20161103, end: 20170216
  11. NEO-SYNEPHRINE COMPOUND COLD [Concomitant]
     Indication: UPPER RESPIRATORY TRACT INFECTION
     Route: 065
     Dates: start: 20161225
  12. ACICLOVIR [Concomitant]
     Active Substance: ACYCLOVIR
     Indication: ANTIVIRAL PROPHYLAXIS
     Dosage: 1200 MILLIGRAM
     Route: 048
  13. METOCLOPRAMIDE. [Concomitant]
     Active Substance: METOCLOPRAMIDE
     Indication: PROPHYLAXIS OF NAUSEA AND VOMITING
     Route: 048
     Dates: start: 20161101
  14. ZOLEDRONIC ACID. [Concomitant]
     Active Substance: ZOLEDRONIC ACID
     Indication: PROPHYLAXIS
     Dosage: 4 MILLIGRAM
     Route: 041
  15. DOXYCYCLINE HYCLATE. [Concomitant]
     Active Substance: DOXYCYCLINE HYCLATE
     Indication: COUGH
     Dosage: 480 MILLIGRAM
     Route: 048
     Dates: start: 20170110
  16. DOXYCYCLINE HYCLATE. [Concomitant]
     Active Substance: DOXYCYCLINE HYCLATE
     Dosage: 400 MILLIGRAM
     Route: 065
     Dates: start: 20170107
  17. DOXYCYCLINE HYCLATE. [Concomitant]
     Active Substance: DOXYCYCLINE HYCLATE
     Dosage: 200 MILLIGRAM
     Route: 065
     Dates: start: 20170110

REACTIONS (5)
  - Fungal skin infection [Not Recovered/Not Resolved]
  - Myocardial ischaemia [Fatal]
  - Syncope [Recovered/Resolved]
  - Hypertensive heart disease [Fatal]
  - Respiratory tract infection [Not Recovered/Not Resolved]

NARRATIVE: CASE EVENT DATE: 20170105
